FAERS Safety Report 7513060-6 (Version None)
Quarter: 2011Q2

REPORT INFORMATION
  Report Type: 
  Country: None (occurrence: None)
  Receive Date: 20110531
  Receipt Date: 20110523
  Transmission Date: 20111010
  Serious: Yes (Hospitalization)
  Sender: FDA-Public Use
  Company Number: US-GILEAD-2011-0039815

PATIENT
  Age: 65 Year
  Sex: Male

DRUGS (2)
  1. LETAIRIS [Suspect]
     Indication: PRODUCT USED FOR UNKNOWN INDICATION
     Route: 048
     Dates: start: 20100216
  2. REVATIO [Concomitant]

REACTIONS (5)
  - DEHYDRATION [None]
  - FLUID OVERLOAD [None]
  - DYSPNOEA [None]
  - PRESYNCOPE [None]
  - ARRHYTHMIA [None]
